FAERS Safety Report 7288855-7 (Version None)
Quarter: 2011Q1

REPORT INFORMATION
  Report Type: 
  Country: None (occurrence: None)
  Receive Date: 20110101
  Receipt Date: 20110105
  Transmission Date: 20110831
  Serious: Yes (Life-Threatening, Hospitalization)
  Sender: FDA-Public Use
  Company Number: USA/USA/11/0017121

PATIENT
  Age: 52 Year
  Sex: Male

DRUGS (7)
  1. IBUPROFEN [Suspect]
     Indication: PRODUCT USED FOR UNKNOWN INDICATION
     Dosage: ORAL
     Route: 048
  2. HIGH POTASSIUM FOODS (POTASSIUM) [Suspect]
     Indication: PRODUCT USED FOR UNKNOWN INDICATION
     Dosage: ORAL
     Route: 048
  3. PARACETAMOL [Concomitant]
  4. EPOGEN [Concomitant]
  5. CALCIUM ACETATE [Concomitant]
  6. ALBUTEROL INHALER [Concomitant]
  7. OXYCODONE [Concomitant]

REACTIONS (15)
  - DYSPNOEA [None]
  - PARALYSIS FLACCID [None]
  - AREFLEXIA [None]
  - ELECTROCARDIOGRAM P WAVE ABNORMAL [None]
  - VITAL CAPACITY DECREASED [None]
  - CHEST PAIN [None]
  - QUADRIPLEGIA [None]
  - BLOOD CREATININE INCREASED [None]
  - BLOOD CALCIUM DECREASED [None]
  - BLOOD UREA INCREASED [None]
  - BLOOD SODIUM DECREASED [None]
  - BLOOD PH DECREASED [None]
  - HYPERKALAEMIA [None]
  - ELECTROCARDIOGRAM QRS COMPLEX PROLONGED [None]
  - MUSCULOSKELETAL PAIN [None]
